FAERS Safety Report 7707864-4 (Version None)
Quarter: 2011Q3

REPORT INFORMATION
  Report Type: 
  Country: None (occurrence: None)
  Receive Date: 20110824
  Receipt Date: 20110822
  Transmission Date: 20111222
  Serious: Yes (Hospitalization)
  Sender: FDA-Public Use
  Company Number: AU-BAYER-2011-075833

PATIENT
  Age: 59 Year
  Sex: Female

DRUGS (1)
  1. ULTRAVIST 150 [Suspect]
     Indication: COMPUTERISED TOMOGRAM
     Dosage: UNK
     Dates: start: 20110822, end: 20110822

REACTIONS (4)
  - CHEST DISCOMFORT [None]
  - GENERALISED ERYTHEMA [None]
  - EYELID OEDEMA [None]
  - MUSCLE TIGHTNESS [None]
